FAERS Safety Report 5741096-4 (Version None)
Quarter: 2008Q2

REPORT INFORMATION
  Report Type: 
  Country: None (occurrence: None)
  Receive Date: 20080516
  Receipt Date: 20080505
  Transmission Date: 20081010
  Serious: Yes (Other)
  Sender: FDA-Public Use
  Company Number: US-PFIZER INC-2008039901

PATIENT
  Sex: Female
  Weight: 42.6 kg

DRUGS (2)
  1. LYRICA [Suspect]
     Indication: FIBROMYALGIA
  2. VALIUM [Concomitant]

REACTIONS (2)
  - MYOCARDIAL INFARCTION [None]
  - PALPITATIONS [None]
